FAERS Safety Report 9715998 (Version 1)
Quarter: 2013Q4

REPORT INFORMATION
  Report Type: Spontaneous
  Country: US (occurrence: None)
  Receive Date: 20131126
  Receipt Date: 20131126
  Transmission Date: 20140711
  Serious: Yes (Other)
  Sender: FDA-Public Use
  Company Number: None

PATIENT
  Age: 56 Year
  Sex: Female

DRUGS (7)
  1. AFFINTOR 10MG [Suspect]
     Route: 048
     Dates: start: 20131002, end: 20131114
  2. EXEMESTONE [Concomitant]
  3. KIOR-CON [Concomitant]
  4. UT D100 UNITS [Concomitant]
  5. CALCIUM [Concomitant]
  6. FONDAPURINUX 10 [Concomitant]
  7. VITAMIN B12 [Concomitant]

REACTIONS (6)
  - Nausea [None]
  - Decreased appetite [None]
  - Arthralgia [None]
  - Neuralgia [None]
  - Muscle spasms [None]
  - Bone disorder [None]
